FAERS Safety Report 8418670-X (Version None)
Quarter: 2012Q2

REPORT INFORMATION
  Report Type: 
  Country: None (occurrence: None)
  Receive Date: 20120607
  Receipt Date: 20120604
  Transmission Date: 20120825
  Serious: Yes (Other)
  Sender: FDA-Public Use
  Company Number: US-PFIZER INC-2012134696

PATIENT
  Sex: Female

DRUGS (5)
  1. DEXTROAMPHETAMINE [Suspect]
     Dosage: 10 MG, 3 TABLETS ONCE DAILY BY MOUTH
     Route: 048
  2. FLEXERIL [Suspect]
     Indication: JAW DISORDER
     Dosage: 10 MG, 1 - 2 TABLETS AT BEDTIME AS NEEDED
     Dates: start: 20120301
  3. ALPRAZOLAM [Suspect]
     Indication: ANXIETY
     Dosage: 0.5 MG, THREE TIMES DAILY AS NEEDED
     Dates: start: 20120301
  4. DEXTROAMPHETAMINE [Suspect]
     Indication: NARCOLEPSY
     Dosage: 30 MG, 1X/DAY
     Route: 048
     Dates: start: 20120101
  5. DEXTROAMPHETAMINE [Suspect]
     Dosage: 30 MG, UNK
     Route: 048
     Dates: start: 20120101

REACTIONS (5)
  - FEELING ABNORMAL [None]
  - ANXIETY [None]
  - SOMNOLENCE [None]
  - DRUG EFFECT DECREASED [None]
  - PARANOIA [None]
